FAERS Safety Report 9995443 (Version 6)
Quarter: 2014Q2

REPORT INFORMATION
  Report Type: Spontaneous
  Country: DE (occurrence: None)
  Receive Date: 20140307
  Receipt Date: 20140428
  Transmission Date: 20141212
  Serious: Yes (Hospitalization, Other)
  Sender: FDA-Public Use
  Company Number: AUR-APL-2014-02539

PATIENT
  Age: 23 Year
  Sex: Male
  Weight: 61.2 kg

DRUGS (45)
  1. ONDANSETRON [Suspect]
     Indication: NAUSEA
     Dates: start: 20140121
  2. TAVOR [Suspect]
     Indication: PAIN
     Dates: start: 20140119, end: 20140119
  3. DECORTIN H [Suspect]
     Indication: COLITIS ULCERATIVE
     Dates: start: 20131125
  4. TARGIN [Suspect]
     Indication: PAIN
     Route: 048
     Dates: start: 20140118, end: 20140125
  5. OXYGESIC [Suspect]
     Indication: PAIN
     Route: 048
     Dates: start: 20140123, end: 20140125
  6. OXYCODONE [Suspect]
     Indication: PAIN
     Dates: start: 20140120
  7. PIRITRAMIDE [Suspect]
     Indication: PAIN
     Route: 042
     Dates: start: 20140123, end: 20140123
  8. PASPERTIN [Suspect]
     Indication: NAUSEA
     Route: 042
     Dates: start: 20140121, end: 20140125
  9. CANCIDAS [Suspect]
     Indication: INFECTION PROPHYLAXIS
     Route: 042
     Dates: start: 20140122, end: 20140122
  10. IMODIUM (LOPERAMIDE HYDROCHLORIDE) (LOPERAMIDE) [Concomitant]
  11. PANTOZOL (PANTOPRAZOLE SODIUM SESQUIHYDRATE) [Concomitant]
  12. BUSCOPAN (HYOSCINE BUTYLBROMIDE) (HYOSCINE BUTYLBROMIDE) [Concomitant]
  13. CLEXANE (ENOXAPARIN SODIUM) [Concomitant]
  14. MEZAVANT (MESALAZINE) [Concomitant]
  15. ROPIVACAINE (ROPIVACAINE) [Concomitant]
  16. NAROPIN (ROPIVACAINE HYDROCHLORIDE) [Concomitant]
  17. PARACETAMOL (PARACETAMOL) [Concomitant]
  18. IBUPROFEN (IBUPROFEN) [Concomitant]
  19. SEVREDOL (MORPHINE SULFATE) [Concomitant]
  20. VFEND (VORICONAZOLE) [Concomitant]
  21. PIPERACILLIN/TAZOBACTAM (PIP/TAZO) [Concomitant]
  22. MERONEM (MEROPENEM TRIHYDRATE) [Concomitant]
  23. NEOSTIGMINE (NEOSTIGMINE) [Concomitant]
  24. JONOSTERIL (JONOSTERIL /00351401/) [Concomitant]
  25. PROPOFOL (PROPOFOL) [Concomitant]
  26. MOVIPREP (MOVIPREP /06224801/) [Concomitant]
  27. ROCEPHIN (CEFTRIAXONE SODIUM) [Concomitant]
  28. STERO ISO (STEROFUNDIN ISO /07306901/) [Concomitant]
  29. POTASSIUM CHLORIDE (POTASSIUM CHLORIDE) [Concomitant]
  30. TRANXILIUM (CLORAZEPATE DIPOTASSIUM) [Concomitant]
  31. FENTANYL (FENTANYL) [Concomitant]
  32. CISATRACURIUM (CISATRACURIUM) [Concomitant]
  33. ZIENAM (PRIMAXIN) [Concomitant]
  34. GELAFUNDIN (GELAFUNDIN /00648401/) [Concomitant]
  35. SEVOFLURANE (SEVOFLURANE) [Concomitant]
  36. IMERON (IOMEPROL) [Concomitant]
  37. NUTRIFLEX ^BRAUN^ (ACETIC ACID W/ALANINE/AMINO ACIDS NOS/ARGININ) [Concomitant]
  38. SODIUM CHLORIDE (SODIUM CHLORIDE) [Concomitant]
  39. ACC (ACETYLCYSTEINE) [Concomitant]
  40. MAALOXAN (ALUDROX /00082501/) [Concomitant]
  41. VOMEX (DIMENHYDRINATE) [Concomitant]
  42. PARACODIN (DIHYDROCODEINE) [Concomitant]
  43. VIGANTOLETTEN (COLECALCIFEROL) [Concomitant]
  44. ASS (ACETYLSALICYLIC ACID) [Concomitant]
  45. DIPIDOLOR [Suspect]
     Indication: PAIN
     Dates: start: 20140116, end: 20140116

REACTIONS (11)
  - Colitis ulcerative [None]
  - Delirium [None]
  - Syncope [None]
  - Tachycardia [None]
  - Bronchopneumonia [None]
  - General physical health deterioration [None]
  - Post procedural complication [None]
  - Pyrexia [None]
  - Pain [None]
  - Pneumonia [None]
  - Asthenia [None]
